FAERS Safety Report 4998753-7 (Version None)
Quarter: 2006Q2

REPORT INFORMATION
  Report Type: 
  Country: None (occurrence: None)
  Receive Date: 20060509
  Receipt Date: 20060426
  Transmission Date: 20061013
  Serious: Yes (Death, Hospitalization, Other)
  Sender: FDA-Public Use
  Company Number: 2005156878

PATIENT
  Sex: Female

DRUGS (8)
  1. NEURONTIN [Suspect]
     Indication: ATTENTION DEFICIT/HYPERACTIVITY DISORDER
     Dosage: 300 MG
     Dates: start: 20031001
  2. NEURONTIN [Suspect]
     Indication: BIPOLAR DISORDER
     Dosage: 300 MG
     Dates: start: 20031001
  3. NEURONTIN [Suspect]
     Indication: PAIN
     Dosage: 300 MG
     Dates: start: 20031001
  4. HYDROXYZINE HCL [Suspect]
     Indication: ANXIETY
     Dosage: 25 MG
     Dates: start: 20031001
  5. REMERON [Suspect]
     Indication: ANXIETY
     Dosage: 15 MG
  6. REMERON [Suspect]
     Indication: DEPRESSION
     Dosage: 15 MG
  7. ULTRAM [Suspect]
     Indication: PAIN
     Dosage: 50 MG
  8. ALL OTHER THERAPEUTIC PRODUCTS (ALL OTHER THERAPEUTIC PRODUCTS) [Suspect]
     Indication: ILL-DEFINED DISORDER

REACTIONS (13)
  - COMPLETED SUICIDE [None]
  - DRUG INEFFECTIVE [None]
  - FATIGUE [None]
  - FEELINGS OF WORTHLESSNESS [None]
  - GUN SHOT WOUND [None]
  - HEAD INJURY [None]
  - LETHARGY [None]
  - MULTIPLE DRUG OVERDOSE INTENTIONAL [None]
  - NAUSEA [None]
  - SOMNOLENCE [None]
  - TACHYCARDIA [None]
  - TREMOR [None]
  - VOMITING [None]
